FAERS Safety Report 8445712-8 (Version None)
Quarter: 2012Q2

REPORT INFORMATION
  Report Type: 
  Country: None (occurrence: None)
  Receive Date: 20120618
  Receipt Date: 20120606
  Transmission Date: 20120825
  Serious: Yes (Hospitalization, Disabling)
  Sender: FDA-Public Use
  Company Number: US-GLAXOSMITHKLINE-A0980358A

PATIENT
  Age: 64 Year
  Sex: Female

DRUGS (12)
  1. TYLOX [Concomitant]
  2. ZOLPIDEM [Concomitant]
  3. SIMVASTATIN [Concomitant]
  4. METFORMIN HCL [Concomitant]
  5. CLONAZEPAM [Concomitant]
  6. ACYCLOVIR [Concomitant]
  7. VALTREX [Suspect]
     Indication: PRODUCT USED FOR UNKNOWN INDICATION
     Dosage: 5TAB FOUR TIMES PER DAY
     Route: 048
  8. VALACYCLOVIR HYDROCHLORIDE [Suspect]
     Indication: PRODUCT USED FOR UNKNOWN INDICATION
     Route: 048
  9. GABAPENTIN [Concomitant]
  10. ACEBUTOLOL [Concomitant]
  11. CITALOPRAM HYDROBROMIDE [Concomitant]
  12. IBUPROFEN [Concomitant]

REACTIONS (9)
  - ILL-DEFINED DISORDER [None]
  - BRAIN INJURY [None]
  - NECK PAIN [None]
  - ENCEPHALITIS [None]
  - THERAPEUTIC RESPONSE UNEXPECTED WITH DRUG SUBSTITUTION [None]
  - MIGRAINE [None]
  - MEMORY IMPAIRMENT [None]
  - DISABILITY [None]
  - HEADACHE [None]
